FAERS Safety Report 5191667-1 (Version None)
Quarter: 2006Q4

REPORT INFORMATION
  Report Type: 
  Country: None (occurrence: None)
  Receive Date: 20061219
  Receipt Date: 20061206
  Transmission Date: 20070319
  Serious: Yes (Other)
  Sender: FDA-Public Use
  Company Number: 2006151032

PATIENT
  Age: 71 Year
  Sex: Female
  Weight: 61.2356 kg

DRUGS (6)
  1. SUTENT [Suspect]
     Indication: METASTATIC NEOPLASM
     Dosage: 50 MG
     Dates: start: 20061127
  2. ACCUPRIL [Concomitant]
  3. ZETIA [Concomitant]
  4. ARTHROTEC [Concomitant]
  5. LOZOL [Concomitant]
  6. WARFARIN SODIUM [Concomitant]

REACTIONS (5)
  - ANGIONEUROTIC OEDEMA [None]
  - DRUG TOXICITY [None]
  - GLOSSODYNIA [None]
  - HYPERSENSITIVITY [None]
  - PAIN IN JAW [None]
